FAERS Safety Report 23758232 (Version 2)
Quarter: 2025Q2

REPORT INFORMATION
  Report Type: Report from Study
  Country: US (occurrence: US)
  Receive Date: 20240418
  Receipt Date: 20250624
  Transmission Date: 20250716
  Serious: Yes (Hospitalization)
  Sender: ELI LILLY AND COMPANY
  Company Number: US-ELI_LILLY_AND_COMPANY-US202404004825

PATIENT
  Age: 35 Year
  Sex: Female

DRUGS (2)
  1. VERZENIO [Suspect]
     Active Substance: ABEMACICLIB
     Indication: Agranulocytosis
     Dosage: 150 MG, BID
     Route: 048
     Dates: end: 20240403
  2. VERZENIO [Suspect]
     Active Substance: ABEMACICLIB
     Dosage: 50 MG, BID
     Route: 048

REACTIONS (14)
  - Full blood count decreased [Unknown]
  - Red blood cell count decreased [Unknown]
  - Diarrhoea [Not Recovered/Not Resolved]
  - Nausea [Not Recovered/Not Resolved]
  - Vomiting [Not Recovered/Not Resolved]
  - White blood cell count decreased [Unknown]
  - Neutropenia [Unknown]
  - Rib fracture [Unknown]
  - Bone disorder [Unknown]
  - Myalgia [Unknown]
  - Pain [Unknown]
  - Drug intolerance [Unknown]
  - Off label use [Unknown]
  - Cough [Unknown]
